FAERS Safety Report 25709794 (Version 1)
Quarter: 2025Q3

REPORT INFORMATION
  Report Type: Spontaneous
  Country: US (occurrence: None)
  Receive Date: 20250820
  Receipt Date: 20250820
  Transmission Date: 20251021
  Serious: Yes (Death)
  Sender: FDA-CTU
  Company Number: None

PATIENT
  Age: 14 Year
  Sex: Female

DRUGS (1)
  1. DEFLAZACORT [Suspect]
     Active Substance: DEFLAZACORT
     Indication: Muscular dystrophy
     Dosage: 66 MG QD

REACTIONS (1)
  - Death [None]
